FAERS Safety Report 23813126 (Version 1)
Quarter: 2024Q2

REPORT INFORMATION
  Report Type: Spontaneous
  Country: US (occurrence: US)
  Receive Date: 20240503
  Receipt Date: 20240503
  Transmission Date: 20240716
  Serious: Yes (Hospitalization, Other)
  Sender: FDA-Public Use
  Company Number: US-AMNEAL PHARMACEUTICALS-2023-AMRX-03818

PATIENT
  Sex: Male
  Weight: 9.977 kg

DRUGS (8)
  1. VIGABATRIN [Suspect]
     Active Substance: VIGABATRIN
     Indication: Infantile spasms
     Dosage: MIX 1 PACKET IN 10 ML OF WATER AND GIVE/TAKE 10 ML (500 MG) IN THE MORNING AND IN THE EVENING
     Route: 048
     Dates: start: 20230810
  2. VIGABATRIN [Suspect]
     Active Substance: VIGABATRIN
     Dosage: 15 ML, (750 MG) MORNING AND EVENING
     Route: 048
  3. MELATONIN [Concomitant]
     Active Substance: MELATONIN
     Indication: Product used for unknown indication
     Dosage: 10 MILLIGRAM CAPSULE
     Route: 065
  4. VITAMIN D NOS [Concomitant]
     Active Substance: VITAMIN D NOS
     Indication: Product used for unknown indication
     Dosage: 10 MCG TABLET
     Route: 065
  5. TOPAMAX [Concomitant]
     Active Substance: TOPIRAMATE
     Indication: Product used for unknown indication
     Dosage: 100 MILLIGRAM TABLET
     Route: 065
  6. FAMOTIDINE [Concomitant]
     Active Substance: FAMOTIDINE
     Indication: Product used for unknown indication
     Dosage: 10 MILLIGRAM TABLET
     Route: 065
  7. PREDNISONE [Concomitant]
     Active Substance: PREDNISONE
     Indication: Product used for unknown indication
     Dosage: 10 MILLIGRAM TABLET DS PK
     Route: 065
  8. HYDROCORTISONE [Concomitant]
     Active Substance: HYDROCORTISONE
     Indication: Product used for unknown indication
     Dosage: 0.5% CREAM
     Route: 065

REACTIONS (5)
  - Seizure [Recovered/Resolved]
  - Hypersomnia [Unknown]
  - Rhinorrhoea [Unknown]
  - Illness [Unknown]
  - Cough [Unknown]
